FAERS Safety Report 5055196-8 (Version None)
Quarter: 2006Q3

REPORT INFORMATION
  Report Type: 
  Country: None (occurrence: None)
  Receive Date: 20060714
  Receipt Date: 20060710
  Transmission Date: 20061208
  Serious: Yes (Death, Hospitalization)
  Sender: FDA-Public Use
  Company Number: HQWYE442628JUN06

PATIENT
  Age: 78 Year
  Sex: Male

DRUGS (8)
  1. ETODOLAC [Suspect]
     Indication: PAIN
     Dosage: 400 MG 1X PER 1 DAY ORAL
     Route: 048
     Dates: start: 20060525, end: 20060601
  2. ETIZOLAM (ETIZOLAM, ) [Suspect]
     Indication: INSOMNIA
     Dosage: 0.5 MG 1X PER 1 DAY ORAL
     Route: 048
     Dates: start: 20060501
  3. FAMOTIDINE [Concomitant]
  4. AMLODIPINE BESYLATE [Concomitant]
  5. ASPIRIN TAB [Concomitant]
  6. MAGNESIUM OXIDE (MAGNESIUM OXIDE) [Concomitant]
  7. TAMSULOSIN HYDROCHLORIDE (TAMSULOSIN HYDROCHLORIDE) [Concomitant]
  8. PANTETHINE (PANTETHINE) [Concomitant]

REACTIONS (9)
  - BLOOD LACTATE DEHYDROGENASE INCREASED [None]
  - CARDIAC ARREST [None]
  - INFLAMMATION [None]
  - INTERSTITIAL LUNG DISEASE [None]
  - PRODUCTIVE COUGH [None]
  - RESPIRATORY ARREST [None]
  - RESTLESSNESS [None]
  - STRIDOR [None]
  - VOMITING [None]
